FAERS Safety Report 15948934 (Version 1)
Quarter: 2019Q1

REPORT INFORMATION
  Report Type: Spontaneous
  Country: DE (occurrence: DE)
  Receive Date: 20190211
  Receipt Date: 20190211
  Transmission Date: 20190417
  Serious: Yes (Hospitalization)
  Sender: FDA-Public Use
  Company Number: PHHY2019DE030033

PATIENT
  Sex: Male

DRUGS (2)
  1. AMOXICLAV 1A PHARMA [Suspect]
     Active Substance: AMOXICILLIN\CLAVULANIC ACID
     Indication: ORTHODONTIC PROCEDURE
     Dosage: UNK
     Route: 048
     Dates: start: 201812
  2. AMOXICLAV 1A PHARMA [Suspect]
     Active Substance: AMOXICILLIN\CLAVULANIC ACID
     Dosage: 1 DF, BID
     Route: 048

REACTIONS (7)
  - Skin reaction [Recovered/Resolved]
  - Oedema mucosal [Recovered/Resolved]
  - Pruritus [Recovered/Resolved]
  - Erythema [Recovered/Resolved]
  - Dyspnoea [Recovered/Resolved]
  - Lip swelling [Recovered/Resolved]
  - Skin swelling [Recovered/Resolved]
